FAERS Safety Report 5764810-0 (Version None)
Quarter: 2008Q2

REPORT INFORMATION
  Report Type: 
  Country: None (occurrence: None)
  Receive Date: 20080605
  Receipt Date: 20080519
  Transmission Date: 20081010
  Serious: Yes (Death, Hospitalization)
  Sender: FDA-Public Use
  Company Number: 2008001054

PATIENT
  Age: 75 Year
  Sex: Male
  Weight: 74.8 kg

DRUGS (26)
  1. ERLOTINIB (ERLOTINIB HCL) (TABLET) (ERLOTINIB HCL) [Suspect]
     Indication: PANCREATIC CARCINOMA
     Dosage: (150 MG, QD) ,ORAL
     Route: 048
     Dates: start: 20080423, end: 20080429
  2. EVEROLIMUS (EVEROLIMUS) [Suspect]
     Indication: PANCREATIC CARCINOMA
     Dosage: (30 MG, QWEEKLY) ,ORAL
     Route: 048
     Dates: start: 20080423, end: 20080423
  3. GLIMEPIRIDE [Concomitant]
  4. NORVASC [Concomitant]
  5. PRILOSEC [Concomitant]
  6. SENOKOT [Concomitant]
  7. MIRALAX [Concomitant]
  8. REGLAN [Concomitant]
  9. DOXYCYCLINE [Concomitant]
  10. ENULOSE [Concomitant]
  11. MILK OF MAGNESIA TAB [Concomitant]
  12. SIMETHICONE (DIMETICONE, ACTIVATED) [Concomitant]
  13. TEMAZEPAM [Concomitant]
  14. DURAGESIC-100 [Concomitant]
  15. ATIVAN [Concomitant]
  16. KLONOPIN [Concomitant]
  17. PROMETHAZINE [Concomitant]
  18. PREGABALIN [Concomitant]
  19. DULOXETINE [Concomitant]
  20. MORPHINE [Concomitant]
  21. BENTYL [Concomitant]
  22. LIDOCAINE PATCH (LIDOCAINE) [Concomitant]
  23. STEROID CREAM [Concomitant]
  24. CULTURELLE [Concomitant]
  25. MARINOL [Concomitant]
  26. DILAUDID [Concomitant]

REACTIONS (18)
  - ARTHRALGIA [None]
  - ASCITES [None]
  - ASTHENIA [None]
  - BLOOD ALBUMIN DECREASED [None]
  - CANDIDIASIS [None]
  - CONFUSIONAL STATE [None]
  - DEHYDRATION [None]
  - FAILURE TO THRIVE [None]
  - GENERALISED OEDEMA [None]
  - HAEMATOCRIT DECREASED [None]
  - HAEMOGLOBIN DECREASED [None]
  - HERPES SIMPLEX [None]
  - MALIGNANT NEOPLASM PROGRESSION [None]
  - MALNUTRITION [None]
  - METASTASES TO BONE [None]
  - OEDEMA PERIPHERAL [None]
  - ORAL INTAKE REDUCED [None]
  - RENAL FAILURE ACUTE [None]
